FAERS Safety Report 12428860 (Version 2)
Quarter: 2016Q2

REPORT INFORMATION
  Report Type: Spontaneous
  Country: CH (occurrence: CH)
  Receive Date: 20160602
  Receipt Date: 20160603
  Transmission Date: 20160815
  Serious: Yes (Hospitalization)
  Sender: FDA-Public Use
  Company Number: CH-BAYER-2016-099184

PATIENT

DRUGS (3)
  1. ACETYLSALICYLIC ACID({=100 MG) [Suspect]
     Active Substance: ASPIRIN
     Dosage: 100 MG, UNK
     Route: 064
  2. DIGOXIN. [Concomitant]
     Active Substance: DIGOXIN
     Route: 064
  3. FONDAPARINUX [Suspect]
     Active Substance: FONDAPARINUX
     Dosage: 2.5 MG, UNK
     Route: 064

REACTIONS (3)
  - Low birth weight baby [None]
  - Foetal exposure timing unspecified [None]
  - Premature baby [None]
